FAERS Safety Report 20837843 (Version 1)
Quarter: 2022Q2

REPORT INFORMATION
  Report Type: Spontaneous
  Country: US (occurrence: US)
  Receive Date: 20220517
  Receipt Date: 20220517
  Transmission Date: 20220721
  Serious: No
  Sender: FDA-Public Use
  Company Number: US-ALLERGAN-2124896US

PATIENT
  Sex: Female
  Weight: 58.05 kg

DRUGS (2)
  1. KYBELLA [Suspect]
     Active Substance: DEOXYCHOLIC ACID
     Indication: Fat tissue increased
     Dosage: 6 SHOTS FROM 1 VIAL (THE ENTIRE VIAL), SINGLE
     Dates: start: 2019, end: 2019
  2. unspecified fillers [Concomitant]

REACTIONS (3)
  - Off label use [Unknown]
  - Wrong technique in product usage process [Unknown]
  - Skin indentation [Not Recovered/Not Resolved]
